FAERS Safety Report 8576796-4 (Version None)
Quarter: 2012Q3

REPORT INFORMATION
  Report Type: 
  Country: None (occurrence: None)
  Receive Date: 20120807
  Receipt Date: 20120803
  Transmission Date: 20120928
  Serious: Yes (Hospitalization, Disabling)
  Sender: FDA-Public Use
  Company Number: BR-AMGEN-US271789

PATIENT
  Age: 55 Year
  Sex: Female
  Weight: 54 kg

DRUGS (7)
  1. EPOGEN [Concomitant]
     Dosage: UNK UNK, UNK
     Route: 065
  2. PROPRANOLOL [Concomitant]
     Dosage: 20 MG, BID
     Route: 065
     Dates: start: 20080404
  3. LOSARTAN POTASSIUM [Concomitant]
     Dosage: 50 MG, QD
     Route: 065
     Dates: start: 20080404
  4. FUROSEMIDE [Concomitant]
     Dosage: 40 MG, BID
     Route: 065
     Dates: start: 20080404
  5. SEVELAMER HCL [Concomitant]
     Dosage: UNK UNK, UNK
     Route: 065
     Dates: start: 20051201
  6. CINACALCET HYDROCHLORIDE [Suspect]
     Indication: HYPERPARATHYROIDISM SECONDARY
     Dosage: UNK UNK, QD
     Route: 065
     Dates: start: 20070930
  7. OMEPRAZOLE [Concomitant]
     Dosage: 40 MG, BID
     Route: 065

REACTIONS (2)
  - CONVULSION [None]
  - CEREBROVASCULAR ACCIDENT [None]
